FAERS Safety Report 14951520 (Version 1)
Quarter: 2018Q2

REPORT INFORMATION
  Report Type: Report from Study
  Country: JP (occurrence: JP)
  Receive Date: 20180530
  Receipt Date: 20180530
  Transmission Date: 20180711
  Serious: Yes (Death, Life-Threatening, Hospitalization, Other)
  Sender: FDA-Public Use
  Company Number: PHJP2018JP011548

PATIENT
  Sex: Female

DRUGS (3)
  1. TAFINLAR [Suspect]
     Active Substance: DABRAFENIB MESYLATE
     Indication: MALIGNANT MELANOMA STAGE IV
     Dosage: 300 MG, UNK
     Route: 048
     Dates: start: 20170412, end: 20170428
  2. MEKINIST [Suspect]
     Active Substance: TRAMETINIB DIMETHYL SULFOXIDE
     Indication: MALIGNANT MELANOMA STAGE IV
     Dosage: 2 MG, UNK
     Route: 048
     Dates: start: 20170412, end: 20170428
  3. TAFINLAR [Suspect]
     Active Substance: DABRAFENIB MESYLATE
     Dosage: 200 MG, UNK
     Route: 048
     Dates: start: 20170516

REACTIONS (17)
  - Performance status decreased [Unknown]
  - Blood pressure decreased [Recovering/Resolving]
  - Pleural effusion [Recovering/Resolving]
  - Abdominal pain [Fatal]
  - Chills [Unknown]
  - Dysuria [Unknown]
  - Malignant melanoma stage IV [Unknown]
  - Malignant neoplasm progression [Unknown]
  - Generalised oedema [Recovering/Resolving]
  - Pyrexia [Recovering/Resolving]
  - Rhabdomyolysis [Recovering/Resolving]
  - Blood creatine phosphokinase increased [Unknown]
  - Abdominal distension [Not Recovered/Not Resolved]
  - Cardiac arrest [Fatal]
  - Malignant ascites [Fatal]
  - Myoglobinuria [Unknown]
  - Intra-abdominal haemorrhage [Unknown]

NARRATIVE: CASE EVENT DATE: 20170428
